FAERS Safety Report 5345092-0 (Version None)
Quarter: 2007Q2

REPORT INFORMATION
  Report Type: 
  Country: None (occurrence: None)
  Receive Date: 20070420
  Receipt Date: 20060316
  Transmission Date: 20071010
  Serious: Yes (Other)
  Sender: FDA-Public Use
  Company Number: 144957USA

PATIENT
  Age: 41 Year
  Sex: Male
  Weight: 82.5093 kg

DRUGS (8)
  1. FLUVOXAMINE MALEATE [Suspect]
     Indication: OBSESSIVE-COMPULSIVE DISORDER
     Dosage: 150 MG (150 MG, ONCE A DAY), ORAL
     Route: 048
     Dates: start: 20050101, end: 20060104
  2. CLOZAPINE [Suspect]
     Indication: SCHIZOPHRENIA
     Dosage: (100 MG, 3 TIMES DAILY), ORAL
     Route: 048
     Dates: start: 20050101
  3. ONDANSETRON HCL [Suspect]
     Indication: SCHIZOPHRENIA
     Dosage: 4 MG (2 MG, TWICE A DAY), ORAL
     Route: 048
     Dates: start: 20051130
  4. VALPROATE SODIUM [Concomitant]
  5. OMEPRAZOLE [Concomitant]
  6. OLANZAPINE [Concomitant]
  7. ALPRAZOLAM [Concomitant]
  8. MIRALAX [Concomitant]

REACTIONS (12)
  - AGITATION [None]
  - AKATHISIA [None]
  - DROOLING [None]
  - ENERGY INCREASED [None]
  - EXTRAPYRAMIDAL DISORDER [None]
  - FAECAL INCONTINENCE [None]
  - OBSESSIVE THOUGHTS [None]
  - PARANOIA [None]
  - POSTURE ABNORMAL [None]
  - SCREAMING [None]
  - SEDATION [None]
  - URINARY INCONTINENCE [None]
